FAERS Safety Report 5077385-9 (Version None)
Quarter: 2006Q3

REPORT INFORMATION
  Report Type: 
  Country: None (occurrence: None)
  Receive Date: 20060810
  Receipt Date: 20060208
  Transmission Date: 20061208
  Serious: No
  Sender: FDA-Public Use
  Company Number: US-GLAXOSMITHKLINE-A0592846A

PATIENT
  Age: 72 Year
  Sex: Female

DRUGS (3)
  1. PAROXETINE HCL [Suspect]
     Indication: DEPRESSION
     Dosage: 30 PER DAY
     Route: 048
     Dates: start: 20040101
  2. NORTRIPTYLINE HCL [Concomitant]
  3. XANAX [Concomitant]

REACTIONS (3)
  - AGITATION [None]
  - DEPRESSION [None]
  - MEMORY IMPAIRMENT [None]
